FAERS Safety Report 5504877-8 (Version None)
Quarter: 2007Q4

REPORT INFORMATION
  Report Type: 
  Country: None (occurrence: None)
  Receive Date: 20071031
  Receipt Date: 20071015
  Transmission Date: 20080405
  Serious: Yes (Hospitalization)
  Sender: FDA-Public Use
  Company Number: ALK_00376_2007

PATIENT
  Sex: Male
  Weight: 81.6475 kg

DRUGS (2)
  1. VIVITROL 380 MG (AKERMES, INC.) [Suspect]
     Indication: ALCOHOLISM
     Dosage: (380 MG 1X/MONTH INTRAMUSCULAR)
     Route: 030
     Dates: start: 20070301
  2. CYMBALTA [Concomitant]

REACTIONS (3)
  - ALCOHOL DETOXIFICATION [None]
  - ALCOHOLISM [None]
  - FATIGUE [None]
